FAERS Safety Report 15923086 (Version 1)
Quarter: 2019Q1

REPORT INFORMATION
  Report Type: Spontaneous
  Country: US (occurrence: US)
  Receive Date: 20190206
  Receipt Date: 20190206
  Transmission Date: 20190417
  Serious: No
  Sender: FDA-Public Use
  Company Number: US-GLENMARK PHARMACEUTICALS-2018GMK038688

PATIENT

DRUGS (2)
  1. MOMETASONE FUROATE CREAM USP [Suspect]
     Active Substance: MOMETASONE FUROATE
     Indication: EAR INFECTION
     Dosage: UNK, OD
     Route: 001
  2. MOMETASONE FUROATE CREAM USP [Suspect]
     Active Substance: MOMETASONE FUROATE
     Indication: PSORIASIS

REACTIONS (3)
  - Product use issue [Unknown]
  - Drug effective for unapproved indication [Unknown]
  - Wrong technique in product usage process [Unknown]
